FAERS Safety Report 9423708 (Version 3)
Quarter: 2013Q3

REPORT INFORMATION
  Report Type: Spontaneous
  Country: JP (occurrence: JP)
  Receive Date: 20130728
  Receipt Date: 20130830
  Transmission Date: 20140515
  Serious: Yes (Other)
  Sender: FDA-Public Use
  Company Number: JP-009507513-1307JPN012183

PATIENT
  Age: 60 Year
  Sex: Female
  Weight: 57 kg

DRUGS (9)
  1. FAMOTIDINE [Suspect]
     Route: 048
  2. CHLORPROMAZINE [Suspect]
     Route: 048
  3. HYDROXYZINE [Suspect]
     Route: 048
  4. ZOPICLONE [Suspect]
     Route: 048
  5. FLUNITRAZEPAM [Suspect]
     Route: 048
  6. LONASEN [Suspect]
     Route: 048
  7. SENNOSIDES [Suspect]
     Route: 048
  8. INVEGA [Suspect]
     Route: 048
  9. ZALTOPROFEN [Suspect]
     Route: 048

REACTIONS (1)
  - Rhabdomyolysis [Unknown]
